FAERS Safety Report 20169800 (Version 1)
Quarter: 2021Q4

REPORT INFORMATION
  Report Type: Spontaneous
  Country: US (occurrence: US)
  Receive Date: 20211210
  Receipt Date: 20211210
  Transmission Date: 20220303
  Serious: No
  Sender: FDA-Public Use
  Company Number: US-JNJFOC-20211205414

PATIENT
  Age: 55 Year
  Sex: Female

DRUGS (4)
  1. STELARA [Suspect]
     Active Substance: USTEKINUMAB
     Indication: Crohn^s disease
     Route: 042
     Dates: start: 202108
  2. STELARA [Suspect]
     Active Substance: USTEKINUMAB
     Route: 058
  3. BUDESONIDE [Suspect]
     Active Substance: BUDESONIDE
     Indication: Musculoskeletal chest pain
     Route: 065
  4. LANSOPRAZOLE [Concomitant]
     Active Substance: LANSOPRAZOLE
     Route: 065

REACTIONS (4)
  - Headache [Not Recovered/Not Resolved]
  - Musculoskeletal chest pain [Unknown]
  - Gait disturbance [Unknown]
  - Migraine [Unknown]

NARRATIVE: CASE EVENT DATE: 20210826
